FAERS Safety Report 10916420 (Version 1)
Quarter: 2015Q1

REPORT INFORMATION
  Report Type: Spontaneous
  Country: US (occurrence: None)
  Receive Date: 20150312
  Receipt Date: 20150312
  Transmission Date: 20150721
  Serious: Yes (Hospitalization, Disabling)
  Sender: FDA-Public Use
  Company Number: None

PATIENT
  Age: 64 Year
  Sex: Female
  Weight: 78.47 kg

DRUGS (6)
  1. METOPROLOL TARTRATE. [Concomitant]
     Active Substance: METOPROLOL TARTRATE
  2. PACLITAXEL. [Suspect]
     Active Substance: PACLITAXEL
     Indication: BREAST CANCER
     Dosage: STRENGTH: 80 MG, FREQUENCY: WEEKLY, INJECTION
     Dates: start: 20130913, end: 20131120
  3. AMITRIPTYLIN [Concomitant]
     Active Substance: AMITRIPTYLINE
  4. LETROZOLE. [Concomitant]
     Active Substance: LETROZOLE
  5. GABAPENTIN. [Concomitant]
     Active Substance: GABAPENTIN
  6. CALCIUM 600 PLUS VITAMIN D-3 [Concomitant]

REACTIONS (3)
  - Fatigue [None]
  - Neuropathy peripheral [None]
  - Asthenia [None]

NARRATIVE: CASE EVENT DATE: 20131208
